FAERS Safety Report 10016168 (Version 1)
Quarter: 2014Q1

REPORT INFORMATION
  Report Type: Spontaneous
  Country: US (occurrence: US)
  Receive Date: 20140317
  Receipt Date: 20140317
  Transmission Date: 20141002
  Serious: Yes (Hospitalization, Other)
  Sender: FDA-Public Use
  Company Number: US-ACTAVIS-2014-04445

PATIENT
  Age: 36 Year
  Sex: Male

DRUGS (1)
  1. DISULFIRAM (WATSON LABORATORIES) [Suspect]
     Indication: ALCOHOL DETOXIFICATION
     Dosage: 250 MG, 3/WEEK
     Route: 048

REACTIONS (3)
  - Acute hepatic failure [Recovered/Resolved]
  - Renal failure [Recovered/Resolved]
  - Liver transplant [Unknown]
